FAERS Safety Report 22110742 (Version 3)
Quarter: 2023Q1

REPORT INFORMATION
  Report Type: Report from Study
  Country: SE (occurrence: SE)
  Receive Date: 20230317
  Receipt Date: 20230330
  Transmission Date: 20230417
  Serious: Yes (Hospitalization)
  Sender: FDA-Public Use
  Company Number: SE-GSK-SE2023039760

PATIENT

DRUGS (15)
  1. BELANTAMAB MAFODOTIN [Suspect]
     Active Substance: BELANTAMAB MAFODOTIN
     Indication: Plasma cell myeloma
     Dosage: 0.5 MG/KG, CYC (38 MG)
     Route: 042
     Dates: start: 20220930
  2. NIROGACESTAT [Suspect]
     Active Substance: NIROGACESTAT
     Indication: Plasma cell myeloma
     Dosage: 1 DF, BID
     Route: 048
     Dates: start: 20220928, end: 20221006
  3. NIROGACESTAT [Suspect]
     Active Substance: NIROGACESTAT
     Dosage: 1 DF, QD
     Route: 048
     Dates: start: 20221010, end: 20221010
  4. NIROGACESTAT [Suspect]
     Active Substance: NIROGACESTAT
     Dosage: 1 DF, BID
     Route: 048
     Dates: start: 20221011, end: 20221116
  5. NIROGACESTAT [Suspect]
     Active Substance: NIROGACESTAT
     Dosage: 1 DF, QD
     Route: 048
     Dates: start: 20221121, end: 20221121
  6. NIROGACESTAT [Suspect]
     Active Substance: NIROGACESTAT
     Dosage: 1 DF, BID
     Route: 048
     Dates: start: 20221122, end: 20221210
  7. NIROGACESTAT [Suspect]
     Active Substance: NIROGACESTAT
     Dosage: 1 DF, QD
     Route: 048
     Dates: start: 20221214, end: 20221214
  8. NIROGACESTAT [Suspect]
     Active Substance: NIROGACESTAT
     Dosage: 1 DF, BID
     Route: 048
     Dates: start: 20221215, end: 20221226
  9. NIROGACESTAT [Suspect]
     Active Substance: NIROGACESTAT
     Dosage: 1 DF, QD
     Route: 048
     Dates: start: 20221211, end: 20221211
  10. NIROGACESTAT [Suspect]
     Active Substance: NIROGACESTAT
     Dosage: 1 DF, BID
     Route: 048
     Dates: start: 20230221
  11. POMALIDOMIDE [Suspect]
     Active Substance: POMALIDOMIDE
     Indication: Plasma cell myeloma
     Dosage: 4 MG, QD
     Route: 048
     Dates: start: 20220930, end: 20221020
  12. POMALIDOMIDE [Suspect]
     Active Substance: POMALIDOMIDE
     Dosage: 4 MG, QD
     Route: 048
     Dates: start: 20221031, end: 20221116
  13. POMALIDOMIDE [Suspect]
     Active Substance: POMALIDOMIDE
     Dosage: 4 MG, QD
     Route: 048
     Dates: start: 20221128, end: 20221211
  14. POMALIDOMIDE [Suspect]
     Active Substance: POMALIDOMIDE
     Dosage: 4 MG, QD
     Route: 048
     Dates: start: 20221214
  15. DEXAMETHASONE [Suspect]
     Active Substance: DEXAMETHASONE
     Indication: Plasma cell myeloma
     Dosage: 40 MG, CYC
     Dates: start: 20220930

REACTIONS (1)
  - Myocardial infarction [Not Recovered/Not Resolved]

NARRATIVE: CASE EVENT DATE: 20230314
